FAERS Safety Report 21560202 (Version 1)
Quarter: 2022Q4

REPORT INFORMATION
  Report Type: Spontaneous
  Country: US (occurrence: US)
  Receive Date: 20221107
  Receipt Date: 20221107
  Transmission Date: 20230113
  Serious: No
  Sender: FDA-Public Use
  Company Number: US-OTSUKA-2022_003148

PATIENT
  Age: 60 Year
  Sex: Male

DRUGS (12)
  1. NUEDEXTA [Suspect]
     Active Substance: DEXTROMETHORPHAN HYDROBROMIDE\QUINIDINE SULFATE
     Indication: Affect lability
     Dosage: UNK
     Route: 065
  2. HALOPERIDOL [Concomitant]
     Active Substance: HALOPERIDOL
     Indication: Anxiety
     Dosage: UNK, AT BED TIME
     Route: 065
  3. HALOPERIDOL [Concomitant]
     Active Substance: HALOPERIDOL
     Indication: Restlessness
  4. VALPROIC ACID [Concomitant]
     Active Substance: VALPROIC ACID
     Indication: Anxiety
     Dosage: 1000 MG, BID
     Route: 065
  5. VALPROIC ACID [Concomitant]
     Active Substance: VALPROIC ACID
     Indication: Restlessness
     Dosage: 750 MG
     Route: 065
  6. CLONAZEPAM [Concomitant]
     Active Substance: CLONAZEPAM
     Indication: Anxiety
     Dosage: UNK, AT BED TIME
     Route: 065
  7. CLONAZEPAM [Concomitant]
     Active Substance: CLONAZEPAM
     Indication: Restlessness
  8. BENZTROPINE [Concomitant]
     Active Substance: BENZTROPINE
     Indication: Restlessness
     Dosage: 1 MG, UNK
     Route: 065
  9. DIPHENHYDRAMINE [Concomitant]
     Active Substance: DIPHENHYDRAMINE
     Indication: Restlessness
     Dosage: UNK, AS NEEDED
     Route: 065
  10. LORAZEPAM [Concomitant]
     Active Substance: LORAZEPAM
     Indication: Anxiety
     Dosage: UNK, AS NEEDED
     Route: 065
  11. FLUOXETINE [Concomitant]
     Active Substance: FLUOXETINE HYDROCHLORIDE
     Indication: Affect lability
     Dosage: 20 MG, QD
     Route: 065
  12. GUAIFENESIN AND DEXTROMETHORPHAN [Concomitant]
     Active Substance: DEXTROMETHORPHAN\GUAIFENESIN
     Indication: Affect lability
     Dosage: 20-200MG, UNK
     Route: 065

REACTIONS (1)
  - Gastrointestinal disorder [Unknown]
